FAERS Safety Report 8878109 (Version 1)
Quarter: 2012Q4

REPORT INFORMATION
  Report Type: 
  Country: US (occurrence: US)
  Receive Date: 20121025
  Receipt Date: 20121025
  Transmission Date: 20130627
  Serious: No
  Sender: FDA-Public Use
  Company Number: US-AMGEN-USASP2012021411

PATIENT
  Sex: Female

DRUGS (13)
  1. ENBREL [Suspect]
     Indication: PRODUCT USED FOR UNKNOWN INDICATION
     Dosage: 50 mg, qwk
     Route: 058
  2. CYMBALTA [Concomitant]
     Dosage: 20 mg, UNK
  3. LASIX                              /00032601/ [Concomitant]
     Dosage: 20 mg, UNK
  4. PREMARIN [Concomitant]
     Dosage: 0.45 mg, UNK
  5. METHOTREXATE [Concomitant]
     Dosage: 2.5 mg, UNK
  6. LYRICA [Concomitant]
     Dosage: 75 mg, UNK
  7. CLONAZEPAM [Concomitant]
     Dosage: 0.5 mg, UNK
  8. CARVEDILOL [Concomitant]
     Dosage: 12.5 mg, UNK
  9. FOLIC ACID [Concomitant]
     Dosage: 1 mg, UNK
  10. FLONASE [Concomitant]
     Dosage: 0.05 %, UNK
  11. PYRIDOXINE [Concomitant]
     Dosage: 25 mg, UNK
  12. VITAMIN D /00107901/ [Concomitant]
  13. POTASSIUM BICARBONATE [Concomitant]
     Dosage: 99 mg, UNK

REACTIONS (1)
  - Pneumonia [Unknown]
